FAERS Safety Report 6781947-8 (Version None)
Quarter: 2010Q2

REPORT INFORMATION
  Report Type: 
  Country: None (occurrence: None)
  Receive Date: 20100621
  Receipt Date: 20100610
  Transmission Date: 20101027
  Serious: Yes (Other)
  Sender: FDA-Public Use
  Company Number: RU-JNJCH-2010014353

PATIENT
  Sex: Female

DRUGS (1)
  1. ROGAINE [Suspect]
     Indication: ANDROGENETIC ALOPECIA
     Dosage: TEXT:UNSPECIFIED
     Route: 061

REACTIONS (4)
  - ALOPECIA [None]
  - DRUG INEFFECTIVE [None]
  - PHYSICAL PRODUCT LABEL ISSUE [None]
  - PRODUCT COUNTERFEIT [None]
